FAERS Safety Report 8572883-5 (Version None)
Quarter: 2012Q3

REPORT INFORMATION
  Report Type: 
  Country: None (occurrence: None)
  Receive Date: 20120806
  Receipt Date: 20120726
  Transmission Date: 20120928
  Serious: Yes (Other)
  Sender: FDA-Public Use
  Company Number: US-ASTRAZENECA-2012SE53331

PATIENT
  Age: 68 Year
  Sex: Female
  Weight: 83.9 kg

DRUGS (2)
  1. SPIRACTIN [Concomitant]
  2. TOPROL-XL [Suspect]
     Indication: HYPERTENSION
     Route: 048

REACTIONS (6)
  - OFF LABEL USE [None]
  - CONVULSION [None]
  - HYPOTENSION [None]
  - FATIGUE [None]
  - DRUG DOSE OMISSION [None]
  - DIZZINESS [None]
